FAERS Safety Report 6761123-5 (Version None)
Quarter: 2010Q2

REPORT INFORMATION
  Report Type: 
  Country: None (occurrence: None)
  Receive Date: 20100604
  Receipt Date: 20100524
  Transmission Date: 20101027
  Serious: Yes (Other)
  Sender: FDA-Public Use
  Company Number: ALA_00492_2010

PATIENT
  Sex: Female

DRUGS (2)
  1. REGLAN [Suspect]
     Indication: IMPAIRED GASTRIC EMPTYING
     Dosage: (DF ORAL)
     Route: 048
     Dates: start: 20100420, end: 20100426
  2. METOCLOPRAMIDE [Suspect]
     Indication: IMPAIRED GASTRIC EMPTYING
     Dosage: (DF ORAL)
     Route: 048
     Dates: start: 20100409, end: 20100419

REACTIONS (14)
  - COELIAC DISEASE [None]
  - CONFUSIONAL STATE [None]
  - CRYING [None]
  - DISTURBANCE IN ATTENTION [None]
  - DYSGEUSIA [None]
  - DYSKINESIA [None]
  - HEART RATE INCREASED [None]
  - HYPERHIDROSIS [None]
  - MEMORY IMPAIRMENT [None]
  - NERVOUS SYSTEM DISORDER [None]
  - NERVOUSNESS [None]
  - PHOTOPHOBIA [None]
  - TARDIVE DYSKINESIA [None]
  - TREMOR [None]
